FAERS Safety Report 14259023 (Version 1)
Quarter: 2017Q4

REPORT INFORMATION
  Report Type: Spontaneous
  Country: JP (occurrence: JP)
  Receive Date: 20171207
  Receipt Date: 20171207
  Transmission Date: 20180321
  Serious: Yes (Hospitalization)
  Sender: FDA-Public Use
  Company Number: PHHY2017JP177821

PATIENT

DRUGS (2)
  1. RIVASTACH [Suspect]
     Active Substance: RIVASTIGMINE
     Dosage: 9.5 MG/24 HOURS (PATCH 10 CM2 DAILY, RIVASTIGMINE BASE 18 MG)
     Route: 062
  2. RIVASTACH [Suspect]
     Active Substance: RIVASTIGMINE
     Indication: DEMENTIA ALZHEIMER^S TYPE
     Dosage: 9.5 MG/24 HOURS (PATCH 10 CM2 DAILY, RIVASTIGMINE BASE 18 MG)
     Route: 062

REACTIONS (1)
  - Gastrointestinal haemorrhage [Unknown]
